FAERS Safety Report 9210475 (Version 2)
Quarter: 2014Q1

REPORT INFORMATION
  Report Type: Spontaneous
  Country: US (occurrence: US)
  Receive Date: 20130404
  Receipt Date: 20140123
  Transmission Date: 20141002
  Serious: Yes (Other)
  Sender: FDA-Public Use
  Company Number: US-PFIZER INC-2013095068

PATIENT
  Age: 82 Year
  Sex: Male

DRUGS (20)
  1. LYRICA [Suspect]
     Indication: HEADACHE
     Dosage: 300 MG, 1X/DAY (AT BEDTIME)
     Route: 048
  2. LYRICA [Suspect]
     Dosage: UNK
  3. WELLBUTRIN XL [Concomitant]
     Dosage: 150 MG, ONCE DAILY
  4. ASPIRIN [Concomitant]
     Dosage: 81 MG, UNK
  5. GLUCOPHAGE [Concomitant]
     Indication: DIABETES MELLITUS
     Dosage: 250 MG, 2X/DAY
  6. LEVOTHYROXINE [Concomitant]
     Indication: THYROID DISORDER
     Dosage: 0.05 MG, DAILY
  7. LISINOPRIL [Concomitant]
     Indication: BLOOD PRESSURE
     Dosage: 10 MG, DAILY
  8. OMEPRAZOLE [Concomitant]
     Indication: ABDOMINAL DISCOMFORT
     Dosage: 40 MG, AM
  9. TRIAMCINOLONE [Concomitant]
     Indication: RASH
     Dosage: 0.1 %
  10. MAGNESIUM [Concomitant]
     Indication: VITAMIN SUPPLEMENTATION
     Dosage: 250 MG, UNK
  11. CLONAZEPAM [Concomitant]
     Dosage: 0.5 MG, HS
  12. TRAZODONE [Concomitant]
     Indication: SLEEP DISORDER
     Dosage: 50 MG, 1X/DAY
  13. TRAZODONE [Concomitant]
     Indication: DEPRESSION
  14. METOPROLOL [Concomitant]
     Indication: BLOOD PRESSURE
     Dosage: 50 MG, 1X/DAY
  15. NORTRIPTYLINE [Concomitant]
     Indication: SLEEP DISORDER
     Dosage: 10 MG, 1X/DAY
  16. LORATADINE [Concomitant]
     Indication: HYPERSENSITIVITY
     Dosage: 10 MG, UNK
  17. SIMVASTATIN [Concomitant]
     Indication: BLOOD CHOLESTEROL
     Dosage: 80 MG, 1X/DAY
  18. ATIVAN [Concomitant]
     Dosage: 10 MG, AS NEEDED
  19. HYDROXYZINE [Concomitant]
     Indication: HYPERSENSITIVITY
     Dosage: 10 MG, 1X/DAY (AS NEEDED)
  20. OXYCOD/APAP [Concomitant]
     Dosage: 5-325 MG, 4X/DAY

REACTIONS (3)
  - Ear infection [Unknown]
  - Oropharyngeal pain [Unknown]
  - Off label use [Unknown]
